FAERS Safety Report 5675244-1 (Version None)
Quarter: 2008Q1

REPORT INFORMATION
  Report Type: 
  Country: None (occurrence: None)
  Receive Date: 20080320
  Receipt Date: 20080310
  Transmission Date: 20080703
  Serious: Yes (Hospitalization)
  Sender: FDA-Public Use
  Company Number: FR-ELI_LILLY_AND_COMPANY-FR200803001918

PATIENT
  Age: 74 Year
  Sex: Female

DRUGS (1)
  1. OPTRUMA [Suspect]
     Route: 048
     Dates: start: 20010101, end: 20020901

REACTIONS (1)
  - BREAST CANCER IN SITU [None]
